FAERS Safety Report 6828064-6 (Version None)
Quarter: 2010Q3

REPORT INFORMATION
  Report Type: 
  Country: None (occurrence: None)
  Receive Date: 20100709
  Receipt Date: 20100628
  Transmission Date: 20110219
  Serious: Yes (Hospitalization)
  Sender: FDA-Public Use
  Company Number: B0664393A

PATIENT
  Sex: Female

DRUGS (10)
  1. RYTHMOL [Suspect]
     Indication: PRODUCT USED FOR UNKNOWN INDICATION
     Route: 048
  2. PIASCLEDINE [Suspect]
     Indication: PRODUCT USED FOR UNKNOWN INDICATION
     Route: 048
  3. SIMVASTATIN [Suspect]
     Indication: PRODUCT USED FOR UNKNOWN INDICATION
     Dates: start: 20100513, end: 20100608
  4. CLONAZEPAM [Concomitant]
     Route: 048
  5. LANSOPRAZOLE [Concomitant]
  6. LEVOTHYROXINE SODIUM [Concomitant]
     Dosage: 75MCG PER DAY
     Route: 048
  7. FLUOXETINE HCL [Concomitant]
     Dosage: 20G PER DAY
     Dates: end: 20100614
  8. WARFARIN SODIUM [Concomitant]
     Indication: PULMONARY EMBOLISM
     Dates: start: 20091101
  9. ENOXAPARIN SODIUM [Concomitant]
     Dates: start: 20100609
  10. ESOMEPRAZOLE MAGNESIUM [Concomitant]
     Dosage: 20MG PER DAY
     Dates: start: 20100609, end: 20100613

REACTIONS (5)
  - ABDOMINAL PAIN [None]
  - CHOLESTASIS [None]
  - CYTOLYTIC HEPATITIS [None]
  - JAUNDICE [None]
  - LIVER FUNCTION TEST ABNORMAL [None]
